FAERS Safety Report 5748876-X (Version None)
Quarter: 2008Q2

REPORT INFORMATION
  Report Type: 
  Country: None (occurrence: None)
  Receive Date: 20080522
  Receipt Date: 20080509
  Transmission Date: 20081010
  Serious: Yes (Death, Hospitalization)
  Sender: FDA-Public Use
  Company Number: 2008US000772

PATIENT
  Age: 43 Year
  Sex: Female

DRUGS (1)
  1. PROGRAF [Suspect]
     Indication: LIVER TRANSPLANT
     Dosage: 3 MG,

REACTIONS (3)
  - GASTROINTESTINAL HAEMORRHAGE [None]
  - LIVER DISORDER [None]
  - VARICES OESOPHAGEAL [None]
